FAERS Safety Report 6093068-0 (Version None)
Quarter: 2009Q1

REPORT INFORMATION
  Report Type: 
  Country: None (occurrence: None)
  Receive Date: 20090225
  Receipt Date: 20090218
  Transmission Date: 20090719
  Serious: Yes (Other)
  Sender: FDA-Public Use
  Company Number: FR-GILEAD-2009-0020416

PATIENT

DRUGS (2)
  1. HEPSERA [Suspect]
  2. LAMIVUDINE [Concomitant]

REACTIONS (1)
  - RENAL TUBULAR DISORDER [None]
